FAERS Safety Report 8847038 (Version 1)
Quarter: 2012Q4

REPORT INFORMATION
  Report Type: Spontaneous
  Country: JP (occurrence: None)
  Receive Date: 20121016
  Receipt Date: 20121016
  Transmission Date: 20130627
  Serious: Yes (Death, Hospitalization)
  Sender: FDA-Public Use
  Company Number: US-2012-10976

PATIENT
  Age: 77 Year
  Sex: Male

DRUGS (2)
  1. CILOSTAZOL [Suspect]
     Route: 048
  2. ASPIRIN (ASPIRIN) [Concomitant]

REACTIONS (7)
  - Cardio-respiratory arrest [None]
  - Aphasia [None]
  - Somnolence [None]
  - Dysarthria [None]
  - Cognitive disorder [None]
  - Gait disturbance [None]
  - Blood pressure increased [None]
